FAERS Safety Report 7070702-X (Version None)
Quarter: 2010Q4

REPORT INFORMATION
  Report Type: 
  Country: None (occurrence: None)
  Receive Date: 20101028
  Receipt Date: 20101028
  Transmission Date: 20110411
  Serious: No
  Sender: FDA-Public Use
  Company Number: None

PATIENT
  Age: 2 Year
  Sex: Female
  Weight: 16.7831 kg

DRUGS (1)
  1. AZITHROMYCIN 100/5ML BARR NDC 50111-793-20 [Suspect]
     Indication: EAR INFECTION
     Dosage: 8.5ML ONCE PO 4.25ML DAILY FOR 4 DAYS PO
     Route: 048
     Dates: start: 20101026, end: 20101027

REACTIONS (2)
  - MEDICATION ERROR [None]
  - PRODUCT LABEL ISSUE [None]
